FAERS Safety Report 19525756 (Version 2)
Quarter: 2021Q3

REPORT INFORMATION
  Report Type: Spontaneous
  Country: NL (occurrence: NL)
  Receive Date: 20210713
  Receipt Date: 20210717
  Transmission Date: 20211014
  Serious: Yes (Other)
  Sender: FDA-Public Use
  Company Number: NL-AUROBINDO-AUR-APL-2021-029048

PATIENT
  Age: 69 Year
  Sex: Female
  Weight: 76.4 kg

DRUGS (2)
  1. COMIRNATY [Suspect]
     Active Substance: TOZINAMERAN
     Indication: COVID-19 IMMUNISATION
     Dosage: 1 DOSAGE FORM
     Route: 065
     Dates: start: 20210611
  2. DICLOFENACNATRIUM 50 MG GASTRO?RESISTANT TABLET [Suspect]
     Active Substance: DICLOFENAC SODIUM
     Indication: TENDONITIS
     Dosage: 50 MILLIGRAM, 3 TIMES A DAY
     Route: 065
     Dates: start: 202105

REACTIONS (16)
  - Arrhythmia [Recovered/Resolved]
  - Condition aggravated [Recovering/Resolving]
  - Oxygen saturation decreased [Recovered/Resolved]
  - Myalgia [Not Recovered/Not Resolved]
  - Malaise [Recovering/Resolving]
  - Nausea [Recovered/Resolved]
  - Pain in extremity [Recovering/Resolving]
  - Injection site warmth [Recovering/Resolving]
  - Paraesthesia [Recovering/Resolving]
  - Fatigue [Recovering/Resolving]
  - Arthralgia [Recovering/Resolving]
  - Blood pressure abnormal [Recovering/Resolving]
  - Injection site inflammation [Recovering/Resolving]
  - Headache [Recovered/Resolved]
  - Injection site swelling [Recovering/Resolving]
  - Muscle spasms [Recovering/Resolving]

NARRATIVE: CASE EVENT DATE: 20210611
